FAERS Safety Report 8424121-1 (Version None)
Quarter: 2012Q2

REPORT INFORMATION
  Report Type: 
  Country: None (occurrence: None)
  Receive Date: 20120608
  Receipt Date: 20120412
  Transmission Date: 20120825
  Serious: No
  Sender: FDA-Public Use
  Company Number: US-ASTRAZENECA-2012SE24408

PATIENT
  Sex: Male

DRUGS (1)
  1. PULMICORT [Suspect]
     Indication: ASTHMA
     Route: 055

REACTIONS (1)
  - DYSPHEMIA [None]
